FAERS Safety Report 11651733 (Version 1)
Quarter: 2015Q4

REPORT INFORMATION
  Report Type: Spontaneous
  Country: US (occurrence: None)
  Receive Date: 20151021
  Receipt Date: 20151021
  Transmission Date: 20160304
  Serious: Yes (Disabling)
  Sender: FDA-Public Use
  Company Number: None

PATIENT
  Age: 44 Year
  Sex: Male
  Weight: 96.62 kg

DRUGS (3)
  1. LIPITOR [Concomitant]
     Active Substance: ATORVASTATIN CALCIUM
  2. LIPITOR [Suspect]
     Active Substance: ATORVASTATIN CALCIUM
     Indication: HYPERCHOLESTEROLAEMIA
     Dosage: 1 PILL
     Route: 048
     Dates: start: 20110901, end: 20151001
  3. NEXIUM [Concomitant]
     Active Substance: ESOMEPRAZOLE MAGNESIUM

REACTIONS (8)
  - Blood testosterone decreased [None]
  - Paraesthesia [None]
  - Chills [None]
  - Musculoskeletal discomfort [None]
  - Erectile dysfunction [None]
  - Loss of libido [None]
  - Neuropathy peripheral [None]
  - Vomiting [None]

NARRATIVE: CASE EVENT DATE: 20140913
